FAERS Safety Report 25709962 (Version 1)
Quarter: 2025Q3

REPORT INFORMATION
  Report Type: Spontaneous
  Country: US (occurrence: None)
  Receive Date: 20250820
  Receipt Date: 20250820
  Transmission Date: 20251020
  Serious: Yes (Hospitalization)
  Sender: FDA-CTU
  Company Number: None

PATIENT
  Age: 77 Year
  Sex: Female

DRUGS (20)
  1. MYCOPHENOLIC ACID [Suspect]
     Active Substance: MYCOPHENOLIC ACID
     Indication: Renal transplant
     Dosage: 360MG DAILY ORAL
     Route: 048
     Dates: start: 20220930, end: 20250811
  2. TACROLIMUS [Suspect]
     Active Substance: TACROLIMUS
     Indication: Renal transplant
     Dosage: 0.5 MG BID ORAL
     Route: 048
     Dates: start: 20220930
  3. ACETAMINOPHEN [Concomitant]
     Active Substance: ACETAMINOPHEN
  4. FLUCONAZOLE [Concomitant]
     Active Substance: FLUCONAZOLE
  5. LIDOCAINE 4% [Concomitant]
     Active Substance: LIDOCAINE
  6. MAGNESIUM [Concomitant]
     Active Substance: MAGNESIUM
  7. MELATONIN [Concomitant]
     Active Substance: MELATONIN
  8. MILK OF MAGNESIA [Concomitant]
     Active Substance: MAGNESIUM HYDROXIDE
  9. MIRALAX [Concomitant]
     Active Substance: POLYETHYLENE GLYCOL 3350
  10. NOVOLIN NOS [Concomitant]
     Active Substance: INSULIN HUMAN
  11. PROCHLORPERAZINE [Concomitant]
     Active Substance: PROCHLORPERAZINE
  12. TACROLIMUS [Concomitant]
     Active Substance: TACROLIMUS
  13. PREDNISONE [Concomitant]
     Active Substance: PREDNISONE
  14. FISH OIL [Concomitant]
     Active Substance: FISH OIL
  15. COENZYME Q10 [Concomitant]
     Active Substance: DIETARY SUPPLEMENT\UBIDECARENONE
  16. ASPIRIN EC LOW DOSE [Concomitant]
  17. LOVASTATIN [Concomitant]
     Active Substance: LOVASTATIN
  18. VITAMINS [Concomitant]
     Active Substance: VITAMINS
  19. ROPINIROLE [Suspect]
     Active Substance: ROPINIROLE
  20. VITAMIN D [Concomitant]
     Active Substance: VITAMIN D NOS

REACTIONS (5)
  - Fall [None]
  - Cryptococcosis [None]
  - Meningitis fungal [None]
  - Therapy cessation [None]
  - Therapy change [None]

NARRATIVE: CASE EVENT DATE: 20250724
